FAERS Safety Report 23198269 (Version 2)
Quarter: 2023Q4

REPORT INFORMATION
  Report Type: Spontaneous
  Country: US (occurrence: US)
  Receive Date: 20231117
  Receipt Date: 20231129
  Transmission Date: 20240110
  Serious: Yes (Hospitalization, Other)
  Sender: FDA-Public Use
  Company Number: US-PFIZER INC-202101727196

PATIENT
  Age: 82 Year
  Sex: Female

DRUGS (7)
  1. IBRANCE [Suspect]
     Active Substance: PALBOCICLIB
     Dosage: 100 MG, CYCLIC (1 TABLET ONCE A DAY FOR 21 DAYS AND OFF FOR 7 DAYS)
     Route: 048
  2. IBRANCE [Suspect]
     Active Substance: PALBOCICLIB
     Dosage: 37.5 MG, DAILY
     Route: 048
     Dates: start: 202110
  3. IBRANCE [Suspect]
     Active Substance: PALBOCICLIB
     Dosage: 75 MG, ALTERNATE DAY
     Route: 048
  4. IBRANCE [Suspect]
     Active Substance: PALBOCICLIB
     Dosage: 75 MG (1 TAB EVERY THIRD DAY)
     Route: 048
  5. IBRANCE [Suspect]
     Active Substance: PALBOCICLIB
     Dosage: 75 MG, CYCLIC AT 1 TAB, EVERY OTHER DAY (QOD) FOR 21 DAYS + THEN 7 DAYS OFF; REPEAT
     Route: 048
  6. IBRANCE [Suspect]
     Active Substance: PALBOCICLIB
     Dosage: 1 TAB, EVERY THIRD DAY
     Route: 048
  7. IBRANCE [Suspect]
     Active Substance: PALBOCICLIB
     Dosage: 75 MG, CYCLIC (2 DAY ON, THEN 1 DAY OFF)
     Route: 048

REACTIONS (5)
  - Deep vein thrombosis [Unknown]
  - Pancytopenia [Unknown]
  - Hepatic steatosis [Unknown]
  - Off label use [Unknown]
  - Off label use [Unknown]

NARRATIVE: CASE EVENT DATE: 20211001
